FAERS Safety Report 9675825 (Version 1)
Quarter: 2013Q4

REPORT INFORMATION
  Report Type: Spontaneous
  Country: US (occurrence: US)
  Receive Date: 20131107
  Receipt Date: 20131107
  Transmission Date: 20140711
  Serious: Yes (Death)
  Sender: FDA-Public Use
  Company Number: US-GLAXOSMITHKLINE-A1048227A

PATIENT
  Age: 52 Year
  Sex: Female

DRUGS (2)
  1. TYKERB [Suspect]
     Indication: BREAST CANCER FEMALE
     Dosage: 5TAB PER DAY
     Route: 048
     Dates: start: 20130926
  2. NO CONCURRENT MEDICATIONS [Concomitant]

REACTIONS (1)
  - Death [Fatal]
